FAERS Safety Report 24244728 (Version 1)
Quarter: 2024Q3

REPORT INFORMATION
  Report Type: Report from Study
  Country: DE (occurrence: DE)
  Receive Date: 20240823
  Receipt Date: 20240823
  Transmission Date: 20241016
  Serious: Yes (Life-Threatening, Hospitalization, Other)
  Sender: BAXTER
  Company Number: DE-BAXTER-2024BAX023170

PATIENT
  Age: 39 Year
  Sex: Female

DRUGS (17)
  1. DOXORUBICIN [Suspect]
     Active Substance: DOXORUBICIN
     Indication: Hodgkin^s disease
     Dosage: 40 MG/KG, CYCLE 2, UNKNOWN, LAST DOSE PRIOR TO ONSET OF THROMBOPENIA GRADE 4
     Route: 065
     Dates: start: 20191023
  2. DOXORUBICIN [Suspect]
     Active Substance: DOXORUBICIN
     Dosage: UNK, CYCLE 2, LAST DOSE PRIOR TO ONSET OF CHRON COLITIS
     Route: 065
     Dates: start: 20191114
  3. CYCLOPHOSPHAMIDE [Suspect]
     Active Substance: CYCLOPHOSPHAMIDE
     Indication: Hodgkin^s disease
     Dosage: 1250 MILLIGRAM/SQ. METER, UNKNOWN, CYCLE 2, LAST DOSE PRIOR TO ONSET OF THROMBOPENIA GRADE 4
     Route: 065
     Dates: start: 20191023
  4. CYCLOPHOSPHAMIDE [Suspect]
     Active Substance: CYCLOPHOSPHAMIDE
     Dosage: UNK, CYCLE 2, LAST DOSE PRIOR TO ONSET OF CHRON COLITIS
     Route: 065
     Dates: start: 20191114
  5. ETOPOSIDE [Suspect]
     Active Substance: ETOPOSIDE
     Indication: Hodgkin^s disease
     Dosage: 150 MILLIGRAM/SQ. METER
     Route: 065
     Dates: start: 20191023
  6. ETOPOSIDE [Suspect]
     Active Substance: ETOPOSIDE
     Dosage: UNK, CYCLE 2, MOST RECENT DOSE
     Route: 065
     Dates: start: 20191025
  7. ETOPOSIDE [Suspect]
     Active Substance: ETOPOSIDE
     Dosage: UNK, CYCLE 2, LAST DOSE PRIOR TO ONSET OF CHRON COLITIS
     Route: 065
     Dates: start: 20191116
  8. DEXAMETHASONE [Suspect]
     Active Substance: DEXAMETHASONE
     Indication: Hodgkin^s disease
     Dosage: 40 MG
     Route: 065
     Dates: start: 20191023
  9. DEXAMETHASONE [Suspect]
     Active Substance: DEXAMETHASONE
     Dosage: UNK, CYCLE 2, UNKNOWN,  MOST RECENT DOSE
     Route: 065
     Dates: start: 20191027
  10. DEXAMETHASONE [Suspect]
     Active Substance: DEXAMETHASONE
     Dosage: UNK, CYCLE 2, LAST DOSE PRIOR TO ONSET OF CHRON COLITIS
     Route: 065
     Dates: start: 20191117
  11. DACARBAZINE [Suspect]
     Active Substance: DACARBAZINE
     Indication: Hodgkin^s disease
     Dosage: 250 MILLIGRAM/SQ. METER, UNKNOWN
     Route: 065
     Dates: start: 20191024
  12. DACARBAZINE [Suspect]
     Active Substance: DACARBAZINE
     Dosage: UNK, CYCLE 2,  MOST RECENT DOSE
     Route: 065
     Dates: start: 20191025
  13. DACARBAZINE [Suspect]
     Active Substance: DACARBAZINE
     Dosage: UNK, CYCLE 2, LAST DOSE PRIOR TO ONSET OF CHRON COLITIS
     Route: 065
     Dates: start: 20191116
  14. BRENTUXIMAB VEDOTIN [Suspect]
     Active Substance: BRENTUXIMAB VEDOTIN
     Indication: Hodgkin^s disease
     Dosage: 1.8 MG/KG, CYCLE 2, LAST DOSE PRIOR TO ONSET OF THROMBOPENIA GRADE 4
     Route: 065
     Dates: start: 20191022
  15. BRENTUXIMAB VEDOTIN [Suspect]
     Active Substance: BRENTUXIMAB VEDOTIN
     Dosage: UNK, CYCLE 2, UNKNOWN, LAST DOSE PRIOR TO ONSET OF CHRON COLITIS
     Route: 065
     Dates: start: 20191113
  16. Tramol [Concomitant]
     Dosage: UNK
     Route: 065
  17. COTRIMOXAZOLE [Concomitant]
     Active Substance: SULFAMETHOXAZOLE\TRIMETHOPRIM
     Dosage: UNK
     Route: 065
     Dates: start: 20191026

REACTIONS (5)
  - Crohn^s disease [Recovered/Resolved]
  - Febrile neutropenia [Recovered/Resolved]
  - Neutropenic sepsis [Recovered/Resolved]
  - Escherichia infection [Recovered/Resolved]
  - Thrombocytopenia [Recovered/Resolved]

NARRATIVE: CASE EVENT DATE: 20191103
